FAERS Safety Report 7825932-3 (Version None)
Quarter: 2011Q4

REPORT INFORMATION
  Report Type: 
  Country: None (occurrence: None)
  Receive Date: 20111019
  Receipt Date: 20111005
  Transmission Date: 20120403
  Serious: Yes (Hospitalization)
  Sender: FDA-Public Use
  Company Number: DK-ROCHE-772223

PATIENT
  Sex: Male
  Weight: 67 kg

DRUGS (20)
  1. VINCRISTINE [Suspect]
     Indication: DIFFUSE LARGE B-CELL LYMPHOMA
     Dosage: DOSE DELAYED
     Route: 042
  2. SULFAMETHOXAZOL [Concomitant]
     Indication: INFECTION PROPHYLAXIS
     Dosage: LAST DOSE PRIOR TO SAE ON 17 MARCH 2011.
     Route: 048
  3. MABTHERA [Suspect]
     Dosage: DOSE DELAYED
     Route: 042
  4. VINCRISTINE [Suspect]
     Dosage: DOSE DELAYED
     Route: 042
  5. MABTHERA [Suspect]
     Route: 042
  6. CYCLOPHOSPHAMIDE [Suspect]
     Indication: DIFFUSE LARGE B-CELL LYMPHOMA
     Dosage: DOSE DELAYED
     Route: 042
  7. DOXORUBICIN HCL [Suspect]
     Indication: DIFFUSE LARGE B-CELL LYMPHOMA
     Dosage: DOSE DELAYED
     Route: 042
  8. DOXORUBICIN HCL [Suspect]
     Dosage: DOSE DELAYED
     Route: 042
  9. SULFAMETHOXAZOL [Concomitant]
     Dosage: DOSE: 400 MG/80 MG, LAST DOSE PRIOR TO SAE ON 05 JUNE 2011
     Route: 048
  10. MABTHERA [Suspect]
     Dosage: DOSE DELAYED
     Route: 042
  11. PREDNISONE [Suspect]
     Dosage: DOSE DELAYED
     Route: 048
  12. PREDNISONE [Suspect]
     Dosage: DATE OF LAST DOSE:  03/JUNE/2011
     Route: 048
  13. CYCLOPHOSPHAMIDE [Suspect]
     Dosage: DOSE DELAYED
     Route: 042
  14. CYCLOPHOSPHAMIDE [Suspect]
     Route: 042
  15. PREDNISONE [Suspect]
     Indication: DIFFUSE LARGE B-CELL LYMPHOMA
     Dosage: DOSE DELAYED
     Route: 048
  16. DOXORUBICIN HCL [Suspect]
     Route: 042
  17. FILGRASTIM [Suspect]
     Indication: DIFFUSE LARGE B-CELL LYMPHOMA
     Dosage: DOSE DELAYED
     Route: 058
  18. FILGRASTIM [Suspect]
     Dosage: DOSE DELAYED
     Route: 058
  19. MABTHERA [Suspect]
     Indication: DIFFUSE LARGE B-CELL LYMPHOMA
     Dosage: DOSE DELAYED.
     Route: 042
  20. FILGRASTIM [Suspect]
     Route: 058

REACTIONS (4)
  - PNEUMONIA [None]
  - INFECTION [None]
  - DIARRHOEA [None]
  - GASTRIC ULCER [None]
